FAERS Safety Report 22193160 (Version 2)
Quarter: 2023Q2

REPORT INFORMATION
  Report Type: Report from Study
  Country: US (occurrence: US)
  Receive Date: 20230410
  Receipt Date: 20230418
  Transmission Date: 20230721
  Serious: No
  Sender: FDA-Public Use
  Company Number: US-BRISTOL-MYERS SQUIBB COMPANY-2023-050952

PATIENT
  Age: 57 Year
  Sex: Female

DRUGS (1)
  1. ORENCIA [Suspect]
     Active Substance: ABATACEPT
     Indication: Rheumatoid arthritis
     Route: 058
     Dates: start: 202003

REACTIONS (6)
  - Rash [Unknown]
  - Skin discolouration [Unknown]
  - Sneezing [Unknown]
  - Nasal dryness [Unknown]
  - Dry skin [Unknown]
  - Eczema [Unknown]
